FAERS Safety Report 5413366-0 (Version None)
Quarter: 2007Q3

REPORT INFORMATION
  Report Type: 
  Country: None (occurrence: None)
  Receive Date: 20070814
  Receipt Date: 20070802
  Transmission Date: 20080115
  Serious: Yes (Other)
  Sender: FDA-Public Use
  Company Number: JP-JNJFOC-20070801242

PATIENT
  Age: 73 Year
  Sex: Male

DRUGS (2)
  1. DUROTEP [Suspect]
     Route: 062
  2. DUROTEP [Suspect]
     Indication: CANCER PAIN
     Route: 062

REACTIONS (4)
  - ABDOMINAL PAIN UPPER [None]
  - ALTERED STATE OF CONSCIOUSNESS [None]
  - DYSPNOEA [None]
  - MUSCLE RIGIDITY [None]
